FAERS Safety Report 7043595-4 (Version None)
Quarter: 2010Q4

REPORT INFORMATION
  Report Type: 
  Country: None (occurrence: None)
  Receive Date: 20101013
  Receipt Date: 20101005
  Transmission Date: 20110411
  Serious: Yes (Other)
  Sender: FDA-Public Use
  Company Number: A0886175A

PATIENT
  Age: 41 Year
  Sex: Female
  Weight: 186.4 kg

DRUGS (18)
  1. AVANDIA [Suspect]
     Dosage: 4MG TWICE PER DAY
     Route: 048
     Dates: start: 20091104, end: 20100401
  2. STUDY MEDICATION [Suspect]
     Indication: RHEUMATOID ARTHRITIS
     Dosage: 10MG TWICE PER DAY
     Route: 048
     Dates: start: 20100824
  3. BYETTA [Suspect]
     Dosage: 10UG TWICE PER DAY
     Route: 058
     Dates: start: 20100601, end: 20100916
  4. METHOTREXATE [Suspect]
     Indication: RHEUMATOID ARTHRITIS
     Dosage: 20MG WEEKLY
     Route: 058
  5. FOLIC ACID [Suspect]
     Indication: RHEUMATOID ARTHRITIS
     Dosage: 3MG PER DAY
     Dates: start: 20071130
  6. GLUCOPHAGE [Concomitant]
     Dates: start: 20070504
  7. GLIPIZIDE [Concomitant]
     Dates: start: 20100401
  8. LANTUS [Concomitant]
     Dates: start: 20100817
  9. ETODOLAC [Concomitant]
     Dates: start: 20080623
  10. PLAQUENIL [Concomitant]
     Dates: start: 20071231
  11. ACETYLSALICYLIC ACID SRT [Concomitant]
     Dosage: 81MG PER DAY
     Dates: start: 20060214
  12. HYDROCHLOROTHIAZIDE [Concomitant]
     Dates: start: 20080926
  13. COZAAR [Concomitant]
     Dates: start: 20100727
  14. PRAVASTATIN [Concomitant]
     Dates: start: 20090813
  15. CYMBALTA [Concomitant]
     Dates: start: 20080926
  16. PRILOSEC [Concomitant]
     Dates: start: 20071015
  17. FLUOXETINE [Concomitant]
     Dates: start: 20060630
  18. CLARITIN [Concomitant]
     Dates: start: 20060303

REACTIONS (7)
  - APHASIA [None]
  - HEADACHE [None]
  - HYPOAESTHESIA FACIAL [None]
  - MENTAL STATUS CHANGES [None]
  - NAUSEA [None]
  - PARAESTHESIA [None]
  - TRANSIENT ISCHAEMIC ATTACK [None]
